FAERS Safety Report 12675716 (Version 1)
Quarter: 2016Q3

REPORT INFORMATION
  Report Type: Spontaneous
  Country: US (occurrence: US)
  Receive Date: 20160823
  Receipt Date: 20160823
  Transmission Date: 20161109
  Serious: No
  Sender: FDA-Public Use
  Company Number: US-JAZZ-2016-US-006598

PATIENT
  Age: 29 Year
  Sex: Male

DRUGS (6)
  1. MODAFINIL. [Concomitant]
     Active Substance: MODAFINIL
  2. CLOMIPRAMINE [Concomitant]
     Active Substance: CLOMIPRAMINE
  3. PROPECIA [Concomitant]
     Active Substance: FINASTERIDE
  4. XYREM [Suspect]
     Active Substance: SODIUM OXYBATE
     Indication: NARCOLEPSY
     Dosage: 3 G, BID
     Route: 048
     Dates: start: 200607, end: 200610
  5. XYREM [Suspect]
     Active Substance: SODIUM OXYBATE
     Dosage: 4.5 G, QD
     Route: 048
     Dates: start: 20160405
  6. XYREM [Suspect]
     Active Substance: SODIUM OXYBATE
     Dosage: 4.5 G, BID
     Route: 048
     Dates: start: 200610, end: 20160404

REACTIONS (1)
  - Malaise [Unknown]

NARRATIVE: CASE EVENT DATE: 20160405
